FAERS Safety Report 16664196 (Version 1)
Quarter: 2019Q3

REPORT INFORMATION
  Report Type: Spontaneous
  Country: NL (occurrence: NL)
  Receive Date: 20190802
  Receipt Date: 20190802
  Transmission Date: 20191004
  Serious: Yes (Life-Threatening, Other)
  Sender: FDA-Public Use
  Company Number: NL-MYLANLABS-2019M1072558

PATIENT
  Sex: Female

DRUGS (1)
  1. PAROXETINE. [Suspect]
     Active Substance: PAROXETINE
     Indication: DEPRESSION
     Dosage: UNK

REACTIONS (9)
  - Fall [Unknown]
  - Memory impairment [Unknown]
  - Abnormal behaviour [Recovered/Resolved]
  - Feeling abnormal [Unknown]
  - Restlessness [Unknown]
  - Suicide attempt [Unknown]
  - Homicide [Unknown]
  - Nightmare [Unknown]
  - Product use issue [Recovered/Resolved]

NARRATIVE: CASE EVENT DATE: 201310
